FAERS Safety Report 6232743-1 (Version None)
Quarter: 2009Q2

REPORT INFORMATION
  Report Type: 
  Country: None (occurrence: None)
  Receive Date: 20090612
  Receipt Date: 20090612
  Transmission Date: 20091009
  Serious: Yes (Other)
  Sender: FDA-Public Use
  Company Number: None

PATIENT
  Age: 58 Year
  Sex: Female
  Weight: 56.6996 kg

DRUGS (2)
  1. VERAMYST [Suspect]
     Indication: MULTIPLE ALLERGIES
     Dosage: 2 SPRAYS PER NOSTRIL ONCE DAILY NASAL
     Route: 045
     Dates: start: 20080701, end: 20090325
  2. VERAMYST [Suspect]
     Indication: NASAL DISORDER
     Dosage: 2 SPRAYS PER NOSTRIL ONCE DAILY NASAL
     Route: 045
     Dates: start: 20080701, end: 20090325

REACTIONS (4)
  - DIARRHOEA [None]
  - FLATULENCE [None]
  - NAUSEA [None]
  - OESOPHAGEAL CANDIDIASIS [None]
